FAERS Safety Report 8481188-2 (Version None)
Quarter: 2012Q3

REPORT INFORMATION
  Report Type: 
  Country: None (occurrence: None)
  Receive Date: 20120702
  Receipt Date: 20120629
  Transmission Date: 20120928
  Serious: Yes (Life-Threatening, Hospitalization, Other)
  Sender: FDA-Public Use
  Company Number: PHFR2012IE002949

PATIENT
  Sex: Female

DRUGS (4)
  1. CLOZARIL [Suspect]
     Indication: SCHIZOPHRENIA
     Dosage: UNK UKN, UNK
     Route: 048
     Dates: start: 20120302
  2. CLARITHROMYCIN [Concomitant]
  3. CLOZARIL [Suspect]
     Dosage: 300 MG, UNK
     Route: 048
     Dates: start: 20120501
  4. AUGMENTIN '125' [Concomitant]

REACTIONS (5)
  - CARDIAC DISORDER [None]
  - PNEUMONIA [None]
  - DYSPNOEA [None]
  - LUNG INFECTION [None]
  - WHITE BLOOD CELL COUNT INCREASED [None]
